FAERS Safety Report 17794690 (Version 5)
Quarter: 2020Q2

REPORT INFORMATION
  Report Type: Spontaneous
  Country: PL (occurrence: PL)
  Receive Date: 20200516
  Receipt Date: 20200624
  Transmission Date: 20200714
  Serious: Yes (Other)
  Sender: FDA-Public Use
  Company Number: PL-AUROBINDO-AUR-APL-2020-025006

PATIENT
  Age: 63 Year
  Sex: Male

DRUGS (15)
  1. PAZOPANIB [Interacting]
     Active Substance: PAZOPANIB
     Dosage: 4TH COURSE
     Route: 065
  2. PAZOPANIB [Interacting]
     Active Substance: PAZOPANIB
     Dosage: 10TH COURSE
     Route: 065
  3. PAZOPANIB [Interacting]
     Active Substance: PAZOPANIB
     Dosage: 6TH COURSE
     Route: 065
  4. PAZOPANIB [Interacting]
     Active Substance: PAZOPANIB
     Dosage: 9TH COURSE
     Route: 065
  5. PAZOPANIB [Interacting]
     Active Substance: PAZOPANIB
     Dosage: 800 MILLIGRAM, ONCE A DAY (FIRST COURSE)
     Route: 065
     Dates: start: 20180112
  6. CLAVULANIC ACID [Suspect]
     Active Substance: CLAVULANIC ACID
     Indication: PRODUCT USED FOR UNKNOWN INDICATION
     Dosage: UNK
     Route: 065
  7. PAZOPANIB [Interacting]
     Active Substance: PAZOPANIB
     Dosage: 800 MILLIGRAM, ONCE A DAY (SECOND COURSE)
     Route: 065
     Dates: start: 2018
  8. PAZOPANIB [Interacting]
     Active Substance: PAZOPANIB
     Indication: RENAL CANCER
     Dosage: UNKUNKNOWN FREQ. (4 TO 11 COURSES)
     Route: 065
  9. PAZOPANIB [Interacting]
     Active Substance: PAZOPANIB
     Dosage: UNKNOWN FREQ. (THIRD COURSE) UNK
     Route: 065
     Dates: start: 2018
  10. PAZOPANIB [Interacting]
     Active Substance: PAZOPANIB
     Dosage: THIRD COURSE
     Route: 065
  11. AMOXICILLIN+CLAVULANIC ACID [Suspect]
     Active Substance: AMOXICILLIN\CLAVULANIC ACID
     Indication: OTITIS MEDIA
     Dosage: UNK
     Route: 065
     Dates: start: 2018
  12. PAZOPANIB [Interacting]
     Active Substance: PAZOPANIB
     Dosage: 5TH COURSE
     Route: 065
  13. PAZOPANIB [Interacting]
     Active Substance: PAZOPANIB
     Dosage: 8TH COURSE
     Route: 065
  14. PAZOPANIB [Interacting]
     Active Substance: PAZOPANIB
     Dosage: 7TH COURSE
     Route: 065
  15. AMOXICILLIN. [Suspect]
     Active Substance: AMOXICILLIN
     Indication: OTITIS MEDIA
     Dosage: UNK
     Route: 065

REACTIONS (4)
  - Otitis media [Unknown]
  - Hepatotoxicity [Recovered/Resolved]
  - Transaminases increased [Recovered/Resolved]
  - Drug interaction [Unknown]

NARRATIVE: CASE EVENT DATE: 2018
